FAERS Safety Report 5971997-3 (Version None)
Quarter: 2008Q4

REPORT INFORMATION
  Report Type: 
  Country: None (occurrence: None)
  Receive Date: 20081201
  Receipt Date: 20081031
  Transmission Date: 20090506
  Serious: No
  Sender: FDA-Public Use
  Company Number: US-BAYER-200837925NA

PATIENT
  Age: 17 Year
  Sex: Female
  Weight: 76 kg

DRUGS (1)
  1. OCELLA [Suspect]
     Indication: AMENORRHOEA
     Route: 048
     Dates: start: 20080901

REACTIONS (4)
  - ABDOMINAL DISTENSION [None]
  - ABDOMINAL PAIN [None]
  - ANOREXIA [None]
  - NO ADVERSE EVENT [None]
